FAERS Safety Report 6205468-6 (Version None)
Quarter: 2009Q2

REPORT INFORMATION
  Report Type: 
  Country: None (occurrence: None)
  Receive Date: 20090527
  Receipt Date: 20090331
  Transmission Date: 20091009
  Serious: No
  Sender: FDA-Public Use
  Company Number: US-ABBOTT-09P-163-0565959-00

PATIENT
  Sex: Female
  Weight: 68.1 kg

DRUGS (5)
  1. SIMCOR [Suspect]
     Indication: HYPERLIPIDAEMIA
     Dosage: 500/20
     Dates: start: 20090330
  2. AVALIDE [Concomitant]
     Indication: BLOOD PRESSURE
     Dosage: 300/15
  3. SULAR [Concomitant]
     Indication: DRUG USE FOR UNKNOWN INDICATION
  4. INDERAL LA [Concomitant]
     Indication: DRUG USE FOR UNKNOWN INDICATION
  5. ASPIRIN [Concomitant]
     Indication: DRUG USE FOR UNKNOWN INDICATION

REACTIONS (2)
  - FLUSHING [None]
  - SKIN BURNING SENSATION [None]
